FAERS Safety Report 5307805-3 (Version None)
Quarter: 2007Q2

REPORT INFORMATION
  Report Type: 
  Country: None (occurrence: None)
  Receive Date: 20070418
  Receipt Date: 20070402
  Transmission Date: 20071010
  Serious: Yes (Hospitalization)
  Sender: FDA-Public Use
  Company Number: 2007000462

PATIENT
  Age: 31 Year
  Sex: Female
  Weight: 81.8 kg

DRUGS (4)
  1. ERLOTINIB  (TABLET) [Suspect]
     Indication: OVARIAN CANCER
     Dosage: 150 MG (QD), ORAL
     Route: 048
     Dates: start: 20070216
  2. BEVACIZUMAB  (INJECTION FOR INFUSION) [Suspect]
     Indication: OVARIAN CANCER
     Dosage: 818 MG (QOW), INTRAVENOUS
     Route: 042
     Dates: start: 20070216
  3. AMBIEN [Concomitant]
  4. HYDROCODONE (HYDROCODONE) [Concomitant]

REACTIONS (4)
  - BLOOD SODIUM DECREASED [None]
  - ENTEROCUTANEOUS FISTULA [None]
  - HAEMATOCRIT DECREASED [None]
  - PLATELET COUNT INCREASED [None]
